FAERS Safety Report 9063331 (Version 1)
Quarter: 2013Q1

REPORT INFORMATION
  Report Type: Report from Study
  Country: US (occurrence: US)
  Receive Date: 20130129
  Receipt Date: 20130129
  Transmission Date: 20140127
  Serious: No
  Sender: FDA-Public Use
  Company Number: US-ABBOTT-12P-163-0947924-00

PATIENT
  Age: 51 Year
  Sex: Female

DRUGS (11)
  1. HUMIRA 40 MG/ 0.8 ML PRE-FILLED SYRINGE [Suspect]
     Indication: RHEUMATOID ARTHRITIS
     Dates: start: 20120615
  2. METHOTREXATE [Concomitant]
     Indication: PRODUCT USED FOR UNKNOWN INDICATION
     Dosage: 8 PILLS EVERY SUNDAY
  3. FOLIC ACID [Concomitant]
     Indication: PRODUCT USED FOR UNKNOWN INDICATION
  4. MOBIC [Concomitant]
     Indication: PRODUCT USED FOR UNKNOWN INDICATION
     Dosage: 15MG DAILY
  5. SOMA WITH CODEINE [Concomitant]
     Indication: PAIN
     Dosage: 1-2 TABLETS EVERY 6 HOURS AS NEEDED
  6. STORE BRAND ZYRTEC - CETIRIZINE [Concomitant]
     Indication: HYPERSENSITIVITY
  7. NEURONTIN [Concomitant]
     Indication: NERVE INJURY
  8. SIMVASTATIN [Concomitant]
     Indication: BLOOD CHOLESTEROL
     Dosage: 40MG DAILY
  9. ESTRADIOL [Concomitant]
     Indication: PRODUCT USED FOR UNKNOWN INDICATION
  10. BENAZEPRIL/HCTZ [Concomitant]
     Indication: BLOOD PRESSURE
     Dosage: 20/25MG DAILY
  11. AMBIEN [Concomitant]
     Indication: PRODUCT USED FOR UNKNOWN INDICATION
     Dosage: AS REQUIRED BUT TAKEN ALMOST EVERY DAY

REACTIONS (4)
  - Somnolence [Recovering/Resolving]
  - Injection site pain [Recovering/Resolving]
  - Muscle spasms [Recovering/Resolving]
  - Muscle spasms [Recovering/Resolving]
